FAERS Safety Report 8544471-8 (Version None)
Quarter: 2012Q3

REPORT INFORMATION
  Report Type: 
  Country: None (occurrence: None)
  Receive Date: 20120727
  Receipt Date: 20120720
  Transmission Date: 20120928
  Serious: Yes (Other)
  Sender: FDA-Public Use
  Company Number: JP-B.I. PHARMACEUTICALS,INC./RIDGEFIELD-2012-BP-13844NB

PATIENT
  Sex: Male

DRUGS (7)
  1. LASIX [Concomitant]
     Indication: HYPERTENSION
     Dosage: 20 MG
     Route: 048
  2. MENEST [Concomitant]
     Indication: PARKINSON'S DISEASE
     Dosage: 200 MG
     Route: 048
     Dates: start: 20120405
  3. VITAMIN B12 [Concomitant]
     Dosage: 1500 MCG
     Route: 048
  4. PRAVASTATIN [Concomitant]
     Indication: DYSLIPIDAEMIA
     Route: 048
  5. NORVASC [Concomitant]
     Indication: HYPERTENSION
     Dosage: 5 MG
     Route: 048
  6. PRAMIPEXOLE DIHYDROCHLORIDE [Suspect]
     Indication: PARKINSON'S DISEASE
     Dosage: 0.25 MG
     Route: 048
     Dates: start: 20120512, end: 20120517
  7. EXFORGE [Concomitant]
     Indication: HYPERTENSION
     Route: 048

REACTIONS (1)
  - URINE OUTPUT DECREASED [None]
